FAERS Safety Report 8152735-5 (Version None)
Quarter: 2012Q1

REPORT INFORMATION
  Report Type: 
  Country: None (occurrence: None)
  Receive Date: 20120221
  Receipt Date: 20120215
  Transmission Date: 20120608
  Serious: Yes (Other)
  Sender: FDA-Public Use
  Company Number: US-JNJFOC-2005083009

PATIENT
  Age: 4 Year
  Sex: Female
  Weight: 19.05 kg

DRUGS (4)
  1. CHILDREN'S MOTRIN [Suspect]
     Route: 048
  2. CHILDREN'S MOTRIN [Suspect]
     Indication: PRODUCT USED FOR UNKNOWN INDICATION
     Dosage: DAILY DOSE TEXT: UNSPECIFIED AMOUNT ONCE
     Route: 048
     Dates: start: 20050603, end: 20050603
  3. CHILDREN'S PEDIACARE LONG ACTING COUGH PLUS COLD [Suspect]
     Indication: PRODUCT USED FOR UNKNOWN INDICATION
     Dosage: DAILY DOSE TEXT: 1 TSP ONCE
     Route: 048
     Dates: start: 20050603, end: 20050603
  4. ACETAMINOPHEN [Suspect]
     Indication: PRODUCT USED FOR UNKNOWN INDICATION
     Dosage: DAILY DOSE TEXT: UNSPECIFIED AMOUNT ONCE
     Route: 048
     Dates: start: 20050603, end: 20050603

REACTIONS (3)
  - MALAISE [None]
  - HYPERSENSITIVITY [None]
  - GAIT DISTURBANCE [None]
